FAERS Safety Report 8771263 (Version 1)
Quarter: 2012Q4

REPORT INFORMATION
  Report Type: 
  Country: BR (occurrence: BR)
  Receive Date: 20120906
  Receipt Date: 20120906
  Transmission Date: 20130627
  Serious: Yes (Hospitalization, Other)
  Sender: FDA-Public Use
  Company Number: PHHY2012BR076468

PATIENT
  Age: 80 Year
  Sex: Male

DRUGS (6)
  1. EXELON PATCH [Suspect]
     Indication: AMNESIA
     Dosage: 9.5 mg, Daily
     Route: 062
  2. EXELON PATCH [Suspect]
     Dosage: 13.3 mg, Daily
     Route: 062
  3. GABAPENTIN [Concomitant]
     Dosage: 1 DF (300 mg) daily
     Route: 048
  4. PROLOPA [Concomitant]
     Indication: LIMB DISCOMFORT
     Dosage: 0.5 DF (50/200 mg), QID
     Route: 048
  5. PROLOPA [Concomitant]
     Dosage: 1 DF (25/100 mg), At bedtime
     Route: 048
  6. SIFROL [Concomitant]
     Indication: LIMB DISCOMFORT
     Dosage: 1 DF (1.5 mg), QD (at night)
     Route: 048

REACTIONS (9)
  - Pneumonia [Recovered/Resolved]
  - Parkinson^s disease [Unknown]
  - Chronic obstructive pulmonary disease [Unknown]
  - Emphysema [Recovered/Resolved]
  - Amnesia [Unknown]
  - Speech disorder [Unknown]
  - Muscular weakness [Unknown]
  - Abasia [Unknown]
  - Speech disorder [None]
